FAERS Safety Report 9290887 (Version 2)
Quarter: 2013Q3

REPORT INFORMATION
  Report Type: Spontaneous
  Country: US (occurrence: US)
  Receive Date: 20130515
  Receipt Date: 20130705
  Transmission Date: 20140515
  Serious: Yes (Other)
  Sender: FDA-Public Use
  Company Number: US-PFIZER INC-2013145288

PATIENT
  Age: 70 Year
  Sex: Female
  Weight: 86.17 kg

DRUGS (6)
  1. LEVOXYL [Suspect]
     Indication: THYROID DISORDER
     Dosage: 100 UG, 1X/DAY
     Dates: start: 200603, end: 20130501
  2. LEVOXYL [Suspect]
     Indication: WEIGHT DECREASED
  3. LEVOTHYROXINE SODIUM [Suspect]
     Indication: THYROID DISORDER
     Dosage: 100 UG, 1X/DAY
     Dates: start: 20130501
  4. LEVOTHYROXINE SODIUM [Suspect]
     Indication: WEIGHT DECREASED
  5. SYMBICORT [Suspect]
     Indication: ASTHMA
     Dosage: UNK, 1X/DAY
  6. SIMVASTATIN [Concomitant]
     Indication: BLOOD CHOLESTEROL INCREASED
     Dosage: 5 MG, 2X/DAY

REACTIONS (2)
  - Asthma [Unknown]
  - Blood pressure increased [Unknown]
